FAERS Safety Report 6139267-0 (Version None)
Quarter: 2009Q2

REPORT INFORMATION
  Report Type: 
  Country: None (occurrence: None)
  Receive Date: 20090401
  Receipt Date: 20090326
  Transmission Date: 20091009
  Serious: Yes (Hospitalization)
  Sender: FDA-Public Use
  Company Number: US-BIOGENIDEC-2009BI007701

PATIENT
  Age: 48 Year
  Sex: Male
  Weight: 117 kg

DRUGS (1)
  1. TYSABRI [Suspect]
     Indication: MULTIPLE SCLEROSIS
     Route: 042
     Dates: start: 20071003

REACTIONS (6)
  - DYSPNOEA [None]
  - MULTIPLE SCLEROSIS RELAPSE [None]
  - OXYGEN SATURATION DECREASED [None]
  - PAIN [None]
  - PULMONARY OEDEMA [None]
  - RESPIRATORY DISORDER [None]
